FAERS Safety Report 10804041 (Version 10)
Quarter: 2015Q4

REPORT INFORMATION
  Report Type: Spontaneous
  Country: US (occurrence: US)
  Receive Date: 20150217
  Receipt Date: 20151229
  Transmission Date: 20160304
  Serious: Yes (Other)
  Sender: FDA-Public Use
  Company Number: US-ELI_LILLY_AND_COMPANY-US201502003065

PATIENT
  Age: 72 Year
  Sex: Female

DRUGS (10)
  1. FORTEO [Suspect]
     Active Substance: TERIPARATIDE
     Dosage: 20 UG, QD
     Route: 065
  2. FORTEO [Suspect]
     Active Substance: TERIPARATIDE
     Dosage: 20 UG, QD
     Route: 065
  3. FORTEO [Suspect]
     Active Substance: TERIPARATIDE
     Dosage: 20 UG, QD
     Route: 065
  4. FORTEO [Suspect]
     Active Substance: TERIPARATIDE
     Dosage: 20 UG, QD
     Route: 065
  5. BOTOX [Concomitant]
     Active Substance: ONABOTULINUMTOXINA
     Indication: MIGRAINE
  6. SYNTHROID [Concomitant]
     Active Substance: LEVOTHYROXINE SODIUM
     Indication: HYPOTHYROIDISM
     Dosage: UNK UNK, UNKNOWN
     Route: 065
  7. VITAMIN D [Suspect]
     Active Substance: CHOLECALCIFEROL
     Indication: VITAMIN D DECREASED
     Dosage: 5000 IU, UNKNOWN
     Route: 065
     Dates: start: 20150320, end: 20150326
  8. BOTOX [Concomitant]
     Active Substance: ONABOTULINUMTOXINA
     Indication: GASTROINTESTINAL MOTILITY DISORDER
     Dosage: UNK UNK, UNKNOWN
  9. FORTEO [Suspect]
     Active Substance: TERIPARATIDE
     Indication: OSTEOPOROSIS
     Dosage: 20 UG, QD
     Route: 065
     Dates: start: 20141113
  10. FORTEO [Suspect]
     Active Substance: TERIPARATIDE
     Dosage: 20 UG, QD
     Route: 065

REACTIONS (25)
  - Migraine [Unknown]
  - Pain in extremity [Not Recovered/Not Resolved]
  - Lymphadenopathy [Unknown]
  - Depressed mood [Not Recovered/Not Resolved]
  - Sciatic nerve neuropathy [Unknown]
  - Arthralgia [Unknown]
  - Vitamin D decreased [Not Recovered/Not Resolved]
  - Headache [Unknown]
  - Visual acuity reduced [Unknown]
  - Visual impairment [Unknown]
  - Memory impairment [Not Recovered/Not Resolved]
  - Pain [Unknown]
  - Oropharyngeal pain [Unknown]
  - Generalised erythema [Not Recovered/Not Resolved]
  - Rash [Not Recovered/Not Resolved]
  - Throat cancer [Unknown]
  - Malaise [Unknown]
  - Dementia Alzheimer^s type [Unknown]
  - Hormone level abnormal [Unknown]
  - Pain in extremity [Not Recovered/Not Resolved]
  - Malaise [Unknown]
  - Fatigue [Not Recovered/Not Resolved]
  - Pain in extremity [Not Recovered/Not Resolved]
  - Barrett^s oesophagus [Unknown]
  - Injection site bruising [Unknown]

NARRATIVE: CASE EVENT DATE: 20150118
